FAERS Safety Report 5097343-8 (Version None)
Quarter: 2006Q3

REPORT INFORMATION
  Report Type: 
  Country: None (occurrence: None)
  Receive Date: 20060901
  Receipt Date: 20060817
  Transmission Date: 20061208
  Serious: Yes (Life-Threatening)
  Sender: FDA-Public Use
  Company Number: PAR_0759_2006

PATIENT
  Age: 65 Year
  Sex: Male

DRUGS (6)
  1. IBUPROFEN [Suspect]
     Indication: ARTHRITIS
     Dosage: DF PO
     Route: 048
     Dates: start: 20060626, end: 20060626
  2. ASPIRIN [Concomitant]
  3. BISOPROLOL FUMARATE [Concomitant]
  4. CANDESARTAN [Concomitant]
  5. GLUCOSAMINE [Concomitant]
  6. NEOCLARITYN [Concomitant]

REACTIONS (1)
  - ANGIONEUROTIC OEDEMA [None]
